FAERS Safety Report 21791924 (Version 1)
Quarter: 2022Q4

REPORT INFORMATION
  Report Type: Report from Study
  Country: GB (occurrence: GB)
  Receive Date: 20221229
  Receipt Date: 20221229
  Transmission Date: 20230113
  Serious: Yes (Hospitalization)
  Sender: FDA-Public Use
  Company Number: GB-002147023-NVSC2022GB295793

PATIENT
  Age: 71 Year
  Sex: Male

DRUGS (1)
  1. ERELZI [Suspect]
     Active Substance: ETANERCEPT-SZZS
     Indication: Rheumatoid arthritis
     Dosage: 50 MG (ERELZI 50MG/1ML PEN)
     Route: 065

REACTIONS (3)
  - Urinary tract infection [Unknown]
  - Body temperature increased [Unknown]
  - Malaise [Unknown]
